FAERS Safety Report 10035369 (Version 1)
Quarter: 2014Q1

REPORT INFORMATION
  Report Type: Spontaneous
  Country: US (occurrence: None)
  Receive Date: 20140306
  Receipt Date: 20140306
  Transmission Date: 20141002
  Serious: Yes (Hospitalization)
  Sender: FDA-Public Use
  Company Number: 163-21880-13062556

PATIENT
  Age: 59 Year
  Sex: Male

DRUGS (6)
  1. REVLIMID [Suspect]
     Indication: PLASMA CELL MYELOMA
     Route: 048
     Dates: start: 20130530
  2. AZOR (ALPRAZOLAM) (UNKNOWN) [Concomitant]
  3. DEXAMETHASONE (DEXAMETHASONE) (UNKNOWN) [Concomitant]
  4. HYDROCHLOROTHIAZIDE (HYDROCHLOROTHIAZIDE) (UNKNOWN) [Concomitant]
  5. OMEPRAZOLE (OMEPRAZOLE) (UNKNOWN) [Concomitant]
  6. WARFARIN (WARFARIN) (UNKNOWN) [Concomitant]

REACTIONS (5)
  - Dehydration [None]
  - Deep vein thrombosis [None]
  - Loss of consciousness [None]
  - Vomiting [None]
  - Muscular weakness [None]
